FAERS Safety Report 8443048-2 (Version None)
Quarter: 2012Q2

REPORT INFORMATION
  Report Type: 
  Country: None (occurrence: None)
  Receive Date: 20120615
  Receipt Date: 20120613
  Transmission Date: 20120825
  Serious: Yes (Life-Threatening)
  Sender: FDA-Public Use
  Company Number: CH-ABBOTT-05P-151-0287050-00

PATIENT
  Age: 62 Year
  Sex: Male

DRUGS (7)
  1. CLARITHROMYCIN [Suspect]
     Indication: PNEUMONIA
  2. VALPROIC ACID [Concomitant]
     Indication: CONVULSION
  3. DEXTROMETHORPHAN HYDROBROMIDE [Concomitant]
     Indication: PRODUCT USED FOR UNKNOWN INDICATION
     Route: 048
  4. ANTIMICROBIEL [Concomitant]
     Indication: PRODUCT USED FOR UNKNOWN INDICATION
  5. VORICONAZOLE [Interacting]
     Indication: PNEUMONIA
  6. CEFTRIAXONE [Concomitant]
     Indication: PNEUMONIA
  7. CODEINE SULFATE [Interacting]
     Indication: COUGH
     Route: 048

REACTIONS (6)
  - LOSS OF CONSCIOUSNESS [None]
  - RENAL IMPAIRMENT [None]
  - COMA [None]
  - UNEVALUABLE EVENT [None]
  - DRUG INTERACTION [None]
  - RESPIRATORY FAILURE [None]
